FAERS Safety Report 25206937 (Version 2)
Quarter: 2025Q3

REPORT INFORMATION
  Report Type: Report from Study
  Country: US (occurrence: US)
  Receive Date: 20250417
  Receipt Date: 20250803
  Transmission Date: 20251020
  Serious: Yes (Other)
  Sender: ALEXION PHARMACEUTICALS
  Company Number: US-AstraZeneca-CH-00846703A

PATIENT
  Sex: Female

DRUGS (1)
  1. BENRALIZUMAB [Suspect]
     Active Substance: BENRALIZUMAB
     Route: 065

REACTIONS (7)
  - Eye infection [Unknown]
  - Cataract [Unknown]
  - Cardiac valve disease [Unknown]
  - Macular degeneration [Unknown]
  - Hypersensitivity [Unknown]
  - Illness [Unknown]
  - Chronic obstructive pulmonary disease [Unknown]
